FAERS Safety Report 4600611-4 (Version None)
Quarter: 2005Q1

REPORT INFORMATION
  Report Type: 
  Country: None (occurrence: None)
  Receive Date: 20050304
  Receipt Date: 20050218
  Transmission Date: 20050727
  Serious: Yes (Death)
  Sender: FDA-Public Use
  Company Number: 02100-UK-05-0002

PATIENT
  Age: 67 Year
  Sex: Male

DRUGS (17)
  1. CILOSTAZOL [Suspect]
     Indication: PERIPHERAL VASCULAR DISORDER
     Dosage: 200 MG; ORAL
     Route: 048
     Dates: start: 20050120, end: 20050129
  2. ATORVASTATIN CALCIUM [Concomitant]
  3. AMITRIPTYLINE HCL [Concomitant]
  4. KAPAKE [Concomitant]
  5. NITRAZEPAM [Concomitant]
  6. ASPIRIN [Concomitant]
  7. PILOCARPINE [Concomitant]
  8. PREDNISOLONE [Concomitant]
  9. PHOLCODINE [Concomitant]
  10. LACTULOSE [Concomitant]
  11. PILOCARPINE HYDROCHLORIDE [Concomitant]
  12. FENTANYL [Concomitant]
  13. AMOXICILLIN [Concomitant]
  14. ONDANSETRON HYDROCHLORIDE [Concomitant]
  15. CARBAMAZEPINE [Concomitant]
  16. CO-CODAMOL [Concomitant]
  17. PARACETAMOL [Concomitant]

REACTIONS (1)
  - SUDDEN CARDIAC DEATH [None]
